FAERS Safety Report 11725745 (Version 1)
Quarter: 2015Q4

REPORT INFORMATION
  Report Type: Spontaneous
  Country: EG (occurrence: EG)
  Receive Date: 20151111
  Receipt Date: 20151111
  Transmission Date: 20160304
  Serious: Yes (Other)
  Sender: FDA-Public Use
  Company Number: EG-ROCHE-1642502

PATIENT
  Age: 50 Year
  Sex: Female

DRUGS (2)
  1. ZYMAR [Concomitant]
     Active Substance: GATIFLOXACIN
     Dosage: STARTED THREE DAYS PRIOR TO THE THIRD INJECTION OF RANIBIZUMAB.
     Route: 065
  2. LUCENTIS [Suspect]
     Active Substance: RANIBIZUMAB
     Indication: DIABETIC RETINAL OEDEMA
     Dosage: THIRD INJECTION (ALSO LAST DOSE PRIOR TO ONSET OF THE EVENTS) RECEIVED ON 28/AUG/2015.
     Route: 050
     Dates: start: 20150826

REACTIONS (3)
  - Uveitis [Unknown]
  - Endophthalmitis [Unknown]
  - Blindness [Not Recovered/Not Resolved]

NARRATIVE: CASE EVENT DATE: 20150830
